FAERS Safety Report 11093866 (Version 2)
Quarter: 2015Q2

REPORT INFORMATION
  Report Type: Spontaneous
  Country: GB (occurrence: GB)
  Receive Date: 20150506
  Receipt Date: 20150617
  Transmission Date: 20150821
  Serious: Yes (Hospitalization, Other)
  Sender: FDA-Public Use
  Company Number: GB-BRISTOL-MYERS SQUIBB COMPANY-BMS-2015-012138

PATIENT
  Age: 72 Year
  Sex: Female

DRUGS (1)
  1. YERVOY [Suspect]
     Active Substance: IPILIMUMAB
     Indication: MALIGNANT MELANOMA
     Dosage: 3 MG/KG, Q3WK
     Route: 042
     Dates: start: 20141003, end: 20141210

REACTIONS (6)
  - Colitis [Unknown]
  - Colectomy [Unknown]
  - Gastrointestinal necrosis [Unknown]
  - Megacolon [Unknown]
  - Volvulus [Unknown]
  - Sepsis [Unknown]

NARRATIVE: CASE EVENT DATE: 20141213
